FAERS Safety Report 6414973-9 (Version None)
Quarter: 2009Q4

REPORT INFORMATION
  Report Type: 
  Country: None (occurrence: None)
  Receive Date: 20091026
  Receipt Date: 20090624
  Transmission Date: 20100525
  Serious: No
  Sender: FDA-Public Use
  Company Number: US-ABBOTT-09P-163-0581985-00

PATIENT
  Sex: Female
  Weight: 85.806 kg

DRUGS (2)
  1. LUPRON DEPOT [Suspect]
     Indication: ENDOMETRIOSIS
     Dates: start: 20090201
  2. LOESTRIN FE 1/20 [Concomitant]
     Indication: ENDOMETRIOSIS
     Dates: start: 20090201

REACTIONS (7)
  - ADNEXA UTERI PAIN [None]
  - DRUG DOSE OMISSION [None]
  - HOT FLUSH [None]
  - HYPERHIDROSIS [None]
  - MUSCLE SPASMS [None]
  - VAGINAL HAEMORRHAGE [None]
  - WEIGHT INCREASED [None]
